FAERS Safety Report 25009103 (Version 1)
Quarter: 2025Q1

REPORT INFORMATION
  Report Type: Spontaneous
  Country: GB (occurrence: GB)
  Receive Date: 20250225
  Receipt Date: 20250225
  Transmission Date: 20250408
  Serious: Yes (Hospitalization, Other)
  Sender: PFIZER
  Company Number: GB-PFIZER INC-202500042156

PATIENT
  Age: 79 Year
  Sex: Female

DRUGS (3)
  1. PAXLOVID [Suspect]
     Active Substance: NIRMATRELVIR\RITONAVIR
     Indication: COVID-19 treatment
     Dates: start: 20240704, end: 202407
  2. HYDROXYCHLOROQUINE [Concomitant]
     Active Substance: HYDROXYCHLOROQUINE
  3. EZETIMIBE [Concomitant]
     Active Substance: EZETIMIBE

REACTIONS (8)
  - Diverticulum intestinal [Recovering/Resolving]
  - Rheumatoid arthritis [Recovering/Resolving]
  - Genital herpes [Recovering/Resolving]
  - Herpes zoster [Recovering/Resolving]
  - Groin pain [Recovering/Resolving]
  - Arthralgia [Recovering/Resolving]
  - COVID-19 [Recovering/Resolving]
  - Herpes virus infection [Recovering/Resolving]

NARRATIVE: CASE EVENT DATE: 20240714
